FAERS Safety Report 5641162-8 (Version None)
Quarter: 2008Q1

REPORT INFORMATION
  Report Type: 
  Country: None (occurrence: None)
  Receive Date: 20080227
  Receipt Date: 20070213
  Transmission Date: 20080703
  Serious: No
  Sender: FDA-Public Use
  Company Number: A0639127A

PATIENT
  Age: 38 Year
  Sex: Male

DRUGS (1)
  1. NICORETTE (MINT) [Suspect]
     Dates: start: 20070211, end: 20070211

REACTIONS (4)
  - MALAISE [None]
  - MOBILITY DECREASED [None]
  - MUSCULAR WEAKNESS [None]
  - NAUSEA [None]
